FAERS Safety Report 6048649-7 (Version None)
Quarter: 2009Q1

REPORT INFORMATION
  Report Type: 
  Country: None (occurrence: None)
  Receive Date: 20090123
  Receipt Date: 20090115
  Transmission Date: 20090719
  Serious: Yes (Life-Threatening)
  Sender: FDA-Public Use
  Company Number: FR-AVENTIS-200910119FR

PATIENT
  Age: 75 Year
  Sex: Male

DRUGS (5)
  1. LASIX [Suspect]
     Route: 048
     Dates: end: 20080610
  2. COVERSYL                           /00790701/ [Suspect]
     Route: 048
     Dates: end: 20080610
  3. PREVISCAN                          /00789001/ [Concomitant]
     Indication: ATRIAL FIBRILLATION
     Route: 048
  4. DETENSIEL                          /00802601/ [Concomitant]
     Indication: ANGINA PECTORIS
     Route: 048
  5. VASTEN                             /00880402/ [Concomitant]
     Route: 048

REACTIONS (3)
  - HYPERKALAEMIA [None]
  - HYPONATRAEMIA [None]
  - RENAL FAILURE ACUTE [None]
